FAERS Safety Report 4369677-3 (Version None)
Quarter: 2004Q2

REPORT INFORMATION
  Report Type: 
  Country: None (occurrence: None)
  Receive Date: 20040603
  Receipt Date: 20040527
  Transmission Date: 20050107
  Serious: Yes (Other)
  Sender: FDA-Public Use
  Company Number: US-BRISTOL-MYERS SQUIBB COMPANY-12598413

PATIENT
  Sex: Female

DRUGS (3)
  1. VIDEX EC [Suspect]
     Indication: HIV INFECTION
     Route: 048
     Dates: start: 20020901
  2. SUSTIVA [Suspect]
     Indication: HIV INFECTION
     Route: 048
     Dates: start: 20020901
  3. VIREAD [Suspect]
     Indication: HIV INFECTION
     Route: 048
     Dates: start: 20020901

REACTIONS (7)
  - APPENDICITIS [None]
  - CD4 LYMPHOCYTES DECREASED [None]
  - CHOLECYSTITIS [None]
  - LACTIC ACIDOSIS [None]
  - PAIN IN EXTREMITY [None]
  - TRANSAMINASES INCREASED [None]
  - WEIGHT DECREASED [None]
